FAERS Safety Report 9819935 (Version 1)
Quarter: 2014Q1

REPORT INFORMATION
  Report Type: Spontaneous
  Country: US (occurrence: None)
  Receive Date: 20140113
  Receipt Date: 20140113
  Transmission Date: 20141002
  Serious: Yes (Other)
  Sender: FDA-Public Use
  Company Number: None

PATIENT
  Age: 48 Year
  Sex: Female

DRUGS (2)
  1. ZICAM [Suspect]
     Indication: NASOPHARYNGITIS
     Dates: start: 20140103, end: 20140106
  2. ZICAM [Suspect]
     Indication: VIRAL INFECTION
     Dates: start: 20140103, end: 20140106

REACTIONS (3)
  - Nasal discomfort [None]
  - Parosmia [None]
  - Dysgeusia [None]
